FAERS Safety Report 18093850 (Version 2)
Quarter: 2020Q3

REPORT INFORMATION
  Report Type: Spontaneous
  Country: US (occurrence: US)
  Receive Date: 20200730
  Receipt Date: 20200813
  Transmission Date: 20201103
  Serious: Yes (Other)
  Sender: FDA-Public Use
  Company Number: US-PFIZER INC-2020288821

PATIENT
  Age: 64 Year
  Sex: Male

DRUGS (16)
  1. LAMOTRIGINE. [Interacting]
     Active Substance: LAMOTRIGINE
     Indication: CRANIOCEREBRAL INJURY
     Dosage: UNK
  2. MODAFINIL. [Interacting]
     Active Substance: MODAFINIL
     Indication: CRANIOCEREBRAL INJURY
     Dosage: UNK
  3. LEVETIRACETAM. [Interacting]
     Active Substance: LEVETIRACETAM
     Indication: CRANIOCEREBRAL INJURY
     Dosage: UNK
  4. CLARITHROMYCIN. [Interacting]
     Active Substance: CLARITHROMYCIN
     Indication: BEHAVIOUR DISORDER
  5. IMIPRAMINE [Interacting]
     Active Substance: IMIPRAMINE
     Indication: BEHAVIOUR DISORDER
  6. MODAFINIL. [Interacting]
     Active Substance: MODAFINIL
     Indication: BEHAVIOUR DISORDER
  7. GABAPENTIN. [Interacting]
     Active Substance: GABAPENTIN
     Indication: BEHAVIOUR DISORDER
  8. LEVETIRACETAM. [Interacting]
     Active Substance: LEVETIRACETAM
     Indication: BEHAVIOUR DISORDER
  9. ZOLPIDEM [Interacting]
     Active Substance: ZOLPIDEM TARTRATE
     Indication: CRANIOCEREBRAL INJURY
     Dosage: UNK
  10. OLANZAPINE. [Interacting]
     Active Substance: OLANZAPINE
     Indication: CRANIOCEREBRAL INJURY
     Dosage: UNK
  11. LAMOTRIGINE. [Interacting]
     Active Substance: LAMOTRIGINE
     Indication: BEHAVIOUR DISORDER
  12. ZOLPIDEM [Interacting]
     Active Substance: ZOLPIDEM TARTRATE
     Indication: BEHAVIOUR DISORDER
  13. OLANZAPINE. [Interacting]
     Active Substance: OLANZAPINE
     Indication: BEHAVIOUR DISORDER
  14. CLARITHROMYCIN. [Interacting]
     Active Substance: CLARITHROMYCIN
     Indication: CRANIOCEREBRAL INJURY
     Dosage: UNK
  15. GABAPENTIN. [Suspect]
     Active Substance: GABAPENTIN
     Indication: CRANIOCEREBRAL INJURY
     Dosage: UNK
  16. IMIPRAMINE [Interacting]
     Active Substance: IMIPRAMINE
     Indication: CRANIOCEREBRAL INJURY
     Dosage: UNK

REACTIONS (4)
  - Off label use [Unknown]
  - Drug interaction [Unknown]
  - Condition aggravated [Recovering/Resolving]
  - Product use in unapproved indication [Unknown]
